APPROVED DRUG PRODUCT: KETOZOLE
Active Ingredient: KETOCONAZOLE
Strength: 2%
Dosage Form/Route: CREAM;TOPICAL
Application: A075638 | Product #001 | TE Code: AB
Applicant: SUN PHARMA CANADA INC
Approved: Dec 18, 2002 | RLD: No | RS: No | Type: RX